FAERS Safety Report 18106939 (Version 6)
Quarter: 2020Q4

REPORT INFORMATION
  Report Type: Spontaneous
  Country: RO (occurrence: RO)
  Receive Date: 20200803
  Receipt Date: 20201228
  Transmission Date: 20210113
  Serious: Yes (Hospitalization, Other)
  Sender: FDA-Public Use
  Company Number: NVSC2020RO214658

PATIENT
  Age: 56 Year
  Sex: Female

DRUGS (14)
  1. ASPIRIN. [Interacting]
     Active Substance: ASPIRIN
     Indication: ACUTE MYOCARDIAL INFARCTION
     Dosage: UNK
     Route: 065
  2. DABIGATRAN [Suspect]
     Active Substance: DABIGATRAN
     Indication: THROMBOSIS PROPHYLAXIS
     Dosage: 150 MG, BID
     Route: 048
  3. DABIGATRAN [Suspect]
     Active Substance: DABIGATRAN
     Indication: DEEP VEIN THROMBOSIS
     Dosage: 300 MG, QD (150 MG, 2X PER DAY)
     Route: 016
  4. CLOPIDOGREL [Interacting]
     Active Substance: CLOPIDOGREL BISULFATE
     Indication: THROMBOSIS PROPHYLAXIS
  5. ARIXTRA [Interacting]
     Active Substance: FONDAPARINUX SODIUM
     Indication: EMBOLISM VENOUS
     Dosage: 7.5 MG, QD
     Route: 065
  6. DEXAMETHASONE. [Concomitant]
     Active Substance: DEXAMETHASONE
     Indication: PRODUCT USED FOR UNKNOWN INDICATION
     Dosage: UNK
     Route: 065
  7. PLATELETS [Concomitant]
     Active Substance: HUMAN PLATELET, ALLOGENIC
     Indication: PRODUCT USED FOR UNKNOWN INDICATION
     Dosage: UNK
     Route: 065
  8. ENOXAPARIN [Suspect]
     Active Substance: ENOXAPARIN
     Indication: PRODUCT USED FOR UNKNOWN INDICATION
     Dosage: UNK
     Route: 065
  9. HEPARIN [Suspect]
     Active Substance: HEPARIN SODIUM
     Indication: DEEP VEIN THROMBOSIS
     Dosage: UNK
     Route: 042
  10. ASPIRIN. [Interacting]
     Active Substance: ASPIRIN
     Indication: THROMBOSIS PROPHYLAXIS
  11. DABIGATRAN [Suspect]
     Active Substance: DABIGATRAN
     Indication: ACUTE MYOCARDIAL INFARCTION
  12. CLOPIDOGREL [Interacting]
     Active Substance: CLOPIDOGREL BISULFATE
     Indication: ACUTE MYOCARDIAL INFARCTION
     Dosage: UNK
     Route: 065
  13. ARIXTRA [Interacting]
     Active Substance: FONDAPARINUX SODIUM
     Indication: THROMBOCYTOPENIA
     Dosage: 2.5 MG, QD
     Route: 065
  14. ELTROMBOPAG [Suspect]
     Active Substance: ELTROMBOPAG
     Indication: IMMUNE THROMBOCYTOPENIA
     Dosage: UNK
     Route: 065

REACTIONS (11)
  - Angina pectoris [Unknown]
  - Menorrhagia [Recovered/Resolved]
  - Deep vein thrombosis [Recovered/Resolved]
  - Labelled drug-drug interaction medication error [Unknown]
  - Pulmonary embolism [Recovered/Resolved]
  - Acute myocardial infarction [Unknown]
  - Off label use [Unknown]
  - Chest pain [Unknown]
  - Thrombocytopenia [Recovering/Resolving]
  - Thrombosis [Recovered/Resolved]
  - Drug ineffective [Unknown]
